FAERS Safety Report 6220209-4 (Version None)
Quarter: 2009Q2

REPORT INFORMATION
  Report Type: 
  Country: None (occurrence: None)
  Receive Date: 20090605
  Receipt Date: 20090522
  Transmission Date: 20091009
  Serious: Yes (Hospitalization, Other)
  Sender: FDA-Public Use
  Company Number: ENT 2007-0134

PATIENT
  Age: 57 Year
  Sex: Male

DRUGS (14)
  1. COMTAN [Suspect]
     Indication: DRUG EFFECT DECREASED
     Dosage: 600 MG, ORAL
     Route: 048
     Dates: start: 20090108, end: 20090117
  2. COMTAN [Suspect]
     Indication: PARKINSON'S DISEASE
     Dosage: 600 MG, ORAL
     Route: 048
     Dates: start: 20090108, end: 20090117
  3. COMTAN [Suspect]
     Indication: DRUG EFFECT DECREASED
     Dosage: 600 MG, ORAL
     Route: 048
     Dates: start: 20070719, end: 20090117
  4. COMTAN [Suspect]
     Indication: PARKINSON'S DISEASE
     Dosage: 600 MG, ORAL
     Route: 048
     Dates: start: 20070719, end: 20090117
  5. MENESIT [Suspect]
     Indication: PARKINSON'S DISEASE
     Dosage: 500 MG (100 MG, 5 IN 1 D), ORAL
     Route: 048
     Dates: start: 20070414, end: 20090107
  6. SELEGILINE HCL [Suspect]
     Indication: PARKINSON'S DISEASE
     Dosage: 7.5 MG (2.5 MG, 3 IN 1 D), ORAL
     Route: 048
     Dates: start: 20070614
  7. CLONAZEPAM [Suspect]
     Indication: PARKINSON'S DISEASE
     Dosage: 6 MG (2 MG, 3 IN 1 D), ORAL
     Route: 048
     Dates: start: 20070414
  8. REQUIP [Suspect]
     Indication: PARKINSON'S DISEASE
     Dosage: 6 MG (2 MG, 3 IN 1 D), ORAL, 8 MG, ORAL, ,12 MG
     Route: 048
     Dates: start: 20070414
  9. REQUIP [Suspect]
     Indication: PARKINSON'S DISEASE
     Dosage: 6 MG (2 MG, 3 IN 1 D), ORAL, 8 MG, ORAL, ,12 MG
     Route: 048
     Dates: start: 20080306
  10. REQUIP [Suspect]
     Indication: PARKINSON'S DISEASE
     Dosage: 6 MG (2 MG, 3 IN 1 D), ORAL, 8 MG, ORAL, ,12 MG
     Route: 048
     Dates: start: 20080925
  11. ARTANE [Suspect]
     Indication: PARKINSON'S DISEASE
     Dosage: 6 MG (2 MG, 3 IN 1 D), ORAL
     Route: 048
     Dates: start: 20070414
  12. TIZANIDINE HCL [Concomitant]
  13. MILMAG [Concomitant]
  14. MADOPAR [Concomitant]

REACTIONS (16)
  - ABNORMAL BEHAVIOUR [None]
  - AGGRESSION [None]
  - AMNESIA [None]
  - BRADYKINESIA [None]
  - CONSTIPATION [None]
  - DECREASED APPETITE [None]
  - DELUSIONAL DISORDER, PERSECUTORY TYPE [None]
  - FALL [None]
  - HALLUCINATION [None]
  - HALLUCINATION, VISUAL [None]
  - INCOHERENT [None]
  - LEGAL PROBLEM [None]
  - MENTAL DISORDER [None]
  - PSYCHIATRIC SYMPTOM [None]
  - TREATMENT NONCOMPLIANCE [None]
  - WEIGHT DECREASED [None]
